FAERS Safety Report 13008992 (Version 2)
Quarter: 2017Q1

REPORT INFORMATION
  Report Type: Spontaneous
  Country: IT (occurrence: IT)
  Receive Date: 20161208
  Receipt Date: 20170222
  Transmission Date: 20170428
  Serious: Yes (Other)
  Sender: FDA-Public Use
  Company Number: IT-PFIZER INC-2016567164

PATIENT
  Age: 91 Year
  Sex: Female

DRUGS (8)
  1. SIMVASTATIN. [Suspect]
     Active Substance: SIMVASTATIN
  2. HALCION [Suspect]
     Active Substance: TRIAZOLAM
  3. ALMARYTM [Suspect]
     Active Substance: FLECAINIDE ACETATE
  4. CLOPIXOL /00876702/ [Suspect]
     Active Substance: ZUCLOPENTHIXOL ACETATE
  5. VASORETIC [Suspect]
     Active Substance: ENALAPRIL MALEATE\HYDROCHLOROTHIAZIDE
  6. TAPAZOLE [Suspect]
     Active Substance: METHIMAZOLE
  7. ARLEVERTAN [Suspect]
     Active Substance: CINNARIZINE\DIMENHYDRINATE
  8. CARDIOASPIRIN [Suspect]
     Active Substance: ASPIRIN

REACTIONS (2)
  - Bradycardia [Unknown]
  - Syncope [Unknown]

NARRATIVE: CASE EVENT DATE: 20160307
